FAERS Safety Report 14109326 (Version 1)
Quarter: 2017Q4

REPORT INFORMATION
  Report Type: Spontaneous
  Country: US (occurrence: US)
  Receive Date: 20171019
  Receipt Date: 20171019
  Transmission Date: 20180321
  Serious: No
  Sender: FDA-Public Use
  Company Number: US-AMGEN-USASP2017151154

PATIENT
  Age: 78 Year
  Sex: Female

DRUGS (3)
  1. IMLYGIC [Suspect]
     Active Substance: TALIMOGENE LAHERPAREPVEC
     Indication: MALIGNANT MELANOMA STAGE IV
     Dosage: UNK
     Route: 026
     Dates: start: 20170929
  2. XANAX [Concomitant]
     Active Substance: ALPRAZOLAM
     Indication: STRESS
     Dosage: 0.5 MG, TID
  3. XANAX [Concomitant]
     Active Substance: ALPRAZOLAM
     Indication: FEAR

REACTIONS (8)
  - Hiccups [Not Recovered/Not Resolved]
  - Eructation [Not Recovered/Not Resolved]
  - Fear [Not Recovered/Not Resolved]
  - Injection site pain [Unknown]
  - Oral herpes [Not Recovered/Not Resolved]
  - Stress [Not Recovered/Not Resolved]
  - Poor quality sleep [Not Recovered/Not Resolved]
  - Nervousness [Not Recovered/Not Resolved]

NARRATIVE: CASE EVENT DATE: 2017
